FAERS Safety Report 7273194-0 (Version None)
Quarter: 2011Q1

REPORT INFORMATION
  Report Type: 
  Country: None (occurrence: None)
  Receive Date: 20110203
  Receipt Date: 20110125
  Transmission Date: 20110831
  Serious: Yes (Other)
  Sender: FDA-Public Use
  Company Number: NO-JNJFOC-20110104273

PATIENT
  Sex: Male

DRUGS (10)
  1. REMICADE [Suspect]
     Indication: PSORIATIC ARTHROPATHY
     Route: 042
  2. REMICADE [Suspect]
     Dosage: 5TH INFUSION
     Route: 042
  3. REMICADE [Suspect]
     Dosage: 5TH INFUSION
     Route: 042
  4. CETIRIZINE HCL [Concomitant]
  5. TEVETENS [Concomitant]
  6. PENTASA [Concomitant]
  7. FOLIC ACID [Concomitant]
  8. RIVOTRIL [Concomitant]
  9. REMICADE [Suspect]
     Indication: COLITIS ULCERATIVE
     Route: 042
  10. METHOTREXATE [Concomitant]

REACTIONS (5)
  - HEART RATE INCREASED [None]
  - BLOOD PRESSURE INCREASED [None]
  - DYSPNOEA [None]
  - INFUSION RELATED REACTION [None]
  - OEDEMA MUCOSAL [None]
